FAERS Safety Report 4864032-1 (Version None)
Quarter: 2005Q4

REPORT INFORMATION
  Report Type: 
  Country: None (occurrence: None)
  Receive Date: 20051219
  Receipt Date: 20051219
  Transmission Date: 20060501
  Serious: Yes (Death)
  Sender: FDA-Public Use
  Company Number: None

PATIENT

DRUGS (11)
  1. FENTANYL [Suspect]
     Indication: PAIN
     Dosage: 100 MCG
  2. NEURONTIN [Concomitant]
  3. COPAXONE [Concomitant]
  4. HYDROCHLOROTHIAZIDE [Concomitant]
  5. PROVIGIL [Concomitant]
  6. EFFEXOR XR [Concomitant]
  7. WELLBUTRIN [Concomitant]
  8. LEVOTHYROXINE SODIUM [Concomitant]
  9. NASONEX [Concomitant]
  10. ASTELIN [Concomitant]
  11. DIAZEPAM [Concomitant]

REACTIONS (2)
  - OVERDOSE [None]
  - WRONG TECHNIQUE IN DRUG USAGE PROCESS [None]
